FAERS Safety Report 7732200-7 (Version None)
Quarter: 2011Q3

REPORT INFORMATION
  Report Type: 
  Country: None (occurrence: None)
  Receive Date: 20110906
  Receipt Date: 20110901
  Transmission Date: 20111222
  Serious: Yes (Death, Hospitalization, Other)
  Sender: FDA-Public Use
  Company Number: BR-ABBOTT-11P-020-0851133-00

PATIENT
  Sex: Female
  Weight: 69 kg

DRUGS (7)
  1. DEFLAZACORT [Concomitant]
     Indication: PAIN
     Dosage: 2 TABLETS DAILY, 7.5MG FORM STRENGTH
     Route: 048
  2. CLONAZEPAM [Concomitant]
     Indication: PRODUCT USED FOR UNKNOWN INDICATION
  3. VITAMIN E [Concomitant]
     Indication: PRODUCT USED FOR UNKNOWN INDICATION
  4. OYSTER CALCIUM [Concomitant]
     Indication: PRODUCT USED FOR UNKNOWN INDICATION
  5. HUMIRA [Suspect]
     Indication: RHEUMATOID ARTHRITIS
     Dates: start: 20100223
  6. FOLIC ACID [Concomitant]
     Indication: PRODUCT USED FOR UNKNOWN INDICATION
  7. VITAMIN B COMPLEX CAP [Concomitant]
     Indication: PRODUCT USED FOR UNKNOWN INDICATION

REACTIONS (5)
  - BLOOD GLUCOSE ABNORMAL [None]
  - CATARACT OPERATION [None]
  - DYSPNOEA [None]
  - RESPIRATORY FAILURE [None]
  - CATARACT [None]
